FAERS Safety Report 4694481-6 (Version None)
Quarter: 2005Q2

REPORT INFORMATION
  Report Type: 
  Country: None (occurrence: None)
  Receive Date: 20050620
  Receipt Date: 20050615
  Transmission Date: 20051028
  Serious: Yes (Life-Threatening)
  Sender: FDA-Public Use
  Company Number: ID-ROCHE-407559

PATIENT
  Age: 65 Year
  Sex: Female
  Weight: 50 kg

DRUGS (1)
  1. ROCEPHIN [Suspect]
     Route: 042
     Dates: start: 20050606, end: 20050606

REACTIONS (1)
  - ANAPHYLACTIC SHOCK [None]
